FAERS Safety Report 5226093-X (Version None)
Quarter: 2007Q1

REPORT INFORMATION
  Report Type: 
  Country: None (occurrence: None)
  Receive Date: 20070201
  Receipt Date: 20070125
  Transmission Date: 20070707
  Serious: Yes (Death, Hospitalization)
  Sender: FDA-Public Use
  Company Number: FRWYE338426OCT06

PATIENT
  Age: 19 Year
  Sex: Female

DRUGS (7)
  1. RAPAMUNE [Suspect]
     Indication: PROPHYLAXIS AGAINST TRANSPLANT REJECTION
     Dosage: 4 MG TOTAL DAILY
     Route: 048
     Dates: start: 20050716
  2. COZAAR [Suspect]
     Route: 048
     Dates: end: 20060101
  3. LUTERAN [Concomitant]
     Route: 048
  4. TRIATEC [Suspect]
     Route: 048
     Dates: end: 20060101
  5. CELLCEPT [Suspect]
     Indication: PROPHYLAXIS AGAINST TRANSPLANT REJECTION
     Route: 048
     Dates: start: 20050716
  6. DETENSIEL [Suspect]
     Route: 048
     Dates: end: 20060101
  7. LERCANIDIPINE HYDROCHLORIDE [Suspect]
     Route: 048

REACTIONS (7)
  - BLOOD PRESSURE DECREASED [None]
  - ELECTROMECHANICAL DISSOCIATION [None]
  - PULMONARY HYPERTENSION [None]
  - RENAL FAILURE ACUTE [None]
  - RIGHT VENTRICULAR FAILURE [None]
  - SHOCK [None]
  - VENOOCCLUSIVE DISEASE [None]
